FAERS Safety Report 6628401-1 (Version None)
Quarter: 2010Q1

REPORT INFORMATION
  Report Type: 
  Country: None (occurrence: None)
  Receive Date: 20100311
  Receipt Date: 20100226
  Transmission Date: 20100710
  Serious: Yes (Death)
  Sender: FDA-Public Use
  Company Number: DE-ROCHE-689535

PATIENT
  Sex: Male
  Weight: 92 kg

DRUGS (4)
  1. PEG-INTERFERON A-2A (RO 25-8310) [Suspect]
     Route: 058
     Dates: start: 20090902, end: 20100221
  2. RIBAVIRIN [Suspect]
     Route: 048
     Dates: start: 20090902, end: 20100221
  3. CITALOPRAM HYDROBROMIDE [Concomitant]
     Indication: DEPRESSION
     Route: 048
     Dates: start: 20090902, end: 20100221
  4. IBUPROFEN [Concomitant]
     Indication: PAIN

REACTIONS (1)
  - SUDDEN CARDIAC DEATH [None]
